FAERS Safety Report 17089019 (Version 1)
Quarter: 2019Q4

REPORT INFORMATION
  Report Type: Spontaneous
  Country: SE (occurrence: SE)
  Receive Date: 20191128
  Receipt Date: 20191128
  Transmission Date: 20200122
  Serious: Yes (Hospitalization)
  Sender: FDA-Public Use
  Company Number: SE-009507513-1911SWE009676

PATIENT
  Sex: Female

DRUGS (5)
  1. ACETAMINOPHEN. [Suspect]
     Active Substance: ACETAMINOPHEN
     Dosage: DOSE UNKNOWN
     Route: 048
     Dates: start: 20180325, end: 20180325
  2. PROPAVAN [Suspect]
     Active Substance: PROPIOMAZINE
     Dosage: DOSE UNKNOWN
     Route: 048
     Dates: start: 20180325, end: 20180325
  3. LERGIGAN (PROMETHAZINE HYDROCHLORIDE) [Suspect]
     Active Substance: PROMETHAZINE HYDROCHLORIDE
     Dosage: 600 MILLIGRAM
     Route: 048
     Dates: start: 20180325, end: 20180325
  4. MIRTAZAPINE. [Suspect]
     Active Substance: MIRTAZAPINE
     Dosage: DOSE UNKNOWN
     Route: 048
     Dates: start: 20180325, end: 20180325
  5. PAROXETINE. [Suspect]
     Active Substance: PAROXETINE
     Dosage: DOSE UNKNOWN
     Route: 048
     Dates: start: 20180325, end: 20180325

REACTIONS (4)
  - Depressed level of consciousness [Unknown]
  - Intentional self-injury [Unknown]
  - Intentional overdose [Unknown]
  - Muscle twitching [Unknown]

NARRATIVE: CASE EVENT DATE: 20180325
